FAERS Safety Report 5649759-6 (Version None)
Quarter: 2008Q1

REPORT INFORMATION
  Report Type: 
  Country: None (occurrence: None)
  Receive Date: 20080304
  Receipt Date: 20080221
  Transmission Date: 20080703
  Serious: Yes (Other)
  Sender: FDA-Public Use
  Company Number: US-PFIZER INC-2008017452

PATIENT

DRUGS (1)
  1. LYRICA [Suspect]
     Dates: start: 20071201, end: 20080126

REACTIONS (3)
  - HERPES ZOSTER [None]
  - PRURITUS GENERALISED [None]
  - SKIN DISCOLOURATION [None]
